FAERS Safety Report 13421540 (Version 1)
Quarter: 2017Q2

REPORT INFORMATION
  Report Type: Spontaneous
  Country: US (occurrence: US)
  Receive Date: 20170410
  Receipt Date: 20170410
  Transmission Date: 20170830
  Serious: Yes (Hospitalization)
  Sender: FDA-Public Use
  Company Number: US-ACCORD-049975

PATIENT
  Age: 61 Year
  Sex: Male

DRUGS (1)
  1. MYCOPHENOLIC ACID. [Suspect]
     Active Substance: MYCOPHENOLIC ACID
     Indication: RENAL TRANSPLANT

REACTIONS (5)
  - Urinary tract infection [Unknown]
  - Gastrointestinal haemorrhage [Unknown]
  - Transplant rejection [Not Recovered/Not Resolved]
  - Hepatic cirrhosis [Unknown]
  - Cardiac arrest [Unknown]
